FAERS Safety Report 8212100-9 (Version None)
Quarter: 2012Q1

REPORT INFORMATION
  Report Type: 
  Country: None (occurrence: None)
  Receive Date: 20120315
  Receipt Date: 20120312
  Transmission Date: 20120608
  Serious: Yes (Other)
  Sender: FDA-Public Use
  Company Number: PHHY2012PL009523

PATIENT
  Sex: Female
  Weight: 60 kg

DRUGS (1)
  1. EXTAVIA [Suspect]
     Indication: MULTIPLE SCLEROSIS
     Dosage: 0.25 MG/ML, UNK
     Route: 058
     Dates: start: 20111227, end: 20120120

REACTIONS (8)
  - DRUG INEFFECTIVE [None]
  - SLEEP DISORDER [None]
  - MYALGIA [None]
  - FEELING ABNORMAL [None]
  - CHILLS [None]
  - OPTIC NEURITIS [None]
  - VISUAL IMPAIRMENT [None]
  - ASTHENIA [None]
